FAERS Safety Report 10154217 (Version 3)
Quarter: 2014Q2

REPORT INFORMATION
  Report Type: Spontaneous
  Country: US (occurrence: US)
  Receive Date: 20140506
  Receipt Date: 20140613
  Transmission Date: 20141212
  Serious: No
  Sender: FDA-Public Use
  Company Number: US-PFIZER INC-2014119009

PATIENT
  Sex: Female

DRUGS (3)
  1. TOVIAZ [Suspect]
     Dosage: UNK
  2. DETROL LA [Suspect]
     Dosage: UNK
  3. DETROL [Suspect]
     Dosage: UNK (1-4 MG DAILY)

REACTIONS (1)
  - Vision blurred [Unknown]
